FAERS Safety Report 7677705-2 (Version None)
Quarter: 2011Q3

REPORT INFORMATION
  Report Type: 
  Country: None (occurrence: None)
  Receive Date: 20110811
  Receipt Date: 20110810
  Transmission Date: 20111222
  Serious: Yes (Death, Other)
  Sender: FDA-Public Use
  Company Number: PHHY2011CA69519

PATIENT
  Sex: Female

DRUGS (5)
  1. PANTOPRAZOLE SODIUM [Concomitant]
     Dosage: 40 MG,DAILY
  2. FOSAMAX [Concomitant]
     Dosage: 70 MG, WEEKLY
  3. ATACAND [Concomitant]
     Dosage: 8 MG, DAILY
  4. CRESTOR [Concomitant]
     Dosage: 5 MG, DAILY
  5. ZOLEDRONOC ACID [Suspect]
     Indication: OSTEOPOROSIS
     Dosage: UNK UKN, UNK
     Route: 042
     Dates: start: 20100602

REACTIONS (2)
  - DEATH [None]
  - BONE NEOPLASM MALIGNANT [None]
